FAERS Safety Report 9291261 (Version 2)
Quarter: 2013Q2

REPORT INFORMATION
  Report Type: Report from Study
  Country: CA (occurrence: CA)
  Receive Date: 20130515
  Receipt Date: 20130624
  Transmission Date: 20140414
  Serious: Yes (Other)
  Sender: FDA-Public Use
  Company Number: CA-ABBOTT-13P-028-1089020-00

PATIENT
  Sex: 0

DRUGS (6)
  1. HUMIRA [Suspect]
     Indication: PRODUCT USED FOR UNKNOWN INDICATION
     Dates: end: 20130130
  2. HUMIRA [Suspect]
     Dates: start: 20130521
  3. CELEBREX [Concomitant]
     Indication: PRODUCT USED FOR UNKNOWN INDICATION
  4. TYLENOL EXTRA STRENGTH [Concomitant]
     Indication: PRODUCT USED FOR UNKNOWN INDICATION
  5. DEPOMEDROL [Concomitant]
     Indication: PRODUCT USED FOR UNKNOWN INDICATION
  6. DEPOMEDROL [Concomitant]
     Dosage: NOT SPECIFIED

REACTIONS (3)
  - Pulmonary oedema [Recovering/Resolving]
  - Cardiomegaly [Recovering/Resolving]
  - Dyspnoea [Recovering/Resolving]
